FAERS Safety Report 7352950-4 (Version None)
Quarter: 2011Q1

REPORT INFORMATION
  Report Type: 
  Country: None (occurrence: None)
  Receive Date: 20110315
  Receipt Date: 20110308
  Transmission Date: 20110831
  Serious: Yes (Death, Other)
  Sender: FDA-Public Use
  Company Number: JP-ROCHE-761122

PATIENT
  Sex: Male

DRUGS (2)
  1. CALONAL [Concomitant]
     Route: 048
     Dates: start: 20110210
  2. TAMIFLU [Suspect]
     Indication: INFLUENZA
     Dosage: FORM: UNCERTAINTY. DOSAGE IS UNCERTAIN
     Route: 048
     Dates: start: 20110210

REACTIONS (2)
  - CARDIO-RESPIRATORY ARREST [None]
  - DIARRHOEA [None]
